FAERS Safety Report 16553251 (Version 1)
Quarter: 2019Q3

REPORT INFORMATION
  Report Type: Spontaneous
  Country: FR (occurrence: FR)
  Receive Date: 20190710
  Receipt Date: 20190710
  Transmission Date: 20191004
  Serious: Yes (Disabling)
  Sender: FDA-Public Use
  Company Number: FR-ASTRAZENECA-2019SE98523

PATIENT
  Age: 9 Year
  Sex: Female

DRUGS (9)
  1. TOCO (TOCOPHERYL ACETATE) [Suspect]
     Active Substance: .ALPHA.-TOCOPHEROL ACETATE, D-
     Indication: CYSTIC FIBROSIS
     Route: 048
  2. VITAMIN K [Suspect]
     Active Substance: PHYTONADIONE
     Indication: CYSTIC FIBROSIS
     Route: 048
  3. A 313 (RETINOL) [Suspect]
     Active Substance: RETINOL
     Indication: CYSTIC FIBROSIS
     Route: 048
  4. POLYSILANE (SIMETICONE) [Suspect]
     Active Substance: DIMETHICONE
     Indication: CYSTIC FIBROSIS
     Dosage: 1.0DF INTERMITTENT
     Route: 048
  5. URSOLVAN [Suspect]
     Active Substance: URSODIOL
     Indication: CYSTIC FIBROSIS
     Route: 048
  6. CREON [Suspect]
     Active Substance: PANCRELIPASE AMYLASE\PANCRELIPASE LIPASE\PANCRELIPASE PROTEASE
     Indication: CYSTIC FIBROSIS
     Route: 048
  7. UVEDOSE [Suspect]
     Active Substance: CHOLECALCIFEROL
     Indication: CYSTIC FIBROSIS
     Dosage: 1.0DF UNKNOWN
     Route: 048
  8. MOPRAL [Suspect]
     Active Substance: OMEPRAZOLE
     Indication: CYSTIC FIBROSIS
     Route: 048
  9. ALVITYL [Suspect]
     Active Substance: VITAMINS
     Indication: CYSTIC FIBROSIS
     Route: 048

REACTIONS (1)
  - Osteochondritis [Recovered/Resolved with Sequelae]

NARRATIVE: CASE EVENT DATE: 20161018
